FAERS Safety Report 8090951-1 (Version None)
Quarter: 2012Q1

REPORT INFORMATION
  Report Type: 
  Country: None (occurrence: None)
  Receive Date: 20120128
  Receipt Date: 20110729
  Transmission Date: 20120608
  Serious: No
  Sender: FDA-Public Use
  Company Number: US-ABBOTT-11P-163-0842864-00

PATIENT
  Sex: Male
  Weight: 83.99 kg

DRUGS (5)
  1. UNKNOWN WATER PILL [Concomitant]
     Indication: CARDIAC DISORDER
  2. GARLIC PILLS [Concomitant]
     Indication: BLOOD CHOLESTEROL INCREASED
  3. FISH OIL [Concomitant]
     Indication: BLOOD CHOLESTEROL INCREASED
  4. UNKNOWN MEDICATION [Concomitant]
     Indication: CARDIAC DISORDER
  5. HUMIRA [Suspect]
     Indication: PSORIASIS
     Route: 058
     Dates: start: 20110501

REACTIONS (2)
  - GASTRIC DISORDER [None]
  - NAUSEA [None]
